FAERS Safety Report 17423915 (Version 2)
Quarter: 2020Q2

REPORT INFORMATION
  Report Type: Report from Study
  Country: US (occurrence: US)
  Receive Date: 20200217
  Receipt Date: 20200410
  Transmission Date: 20200713
  Serious: No
  Sender: FDA-Public Use
  Company Number: NVSC2020US041213

PATIENT
  Sex: Female
  Weight: 104.49 kg

DRUGS (1)
  1. ILARIS [Suspect]
     Active Substance: CANAKINUMAB
     Indication: PYREXIA
     Dosage: 150 MG, (EVERY 28 DAYS)
     Route: 058

REACTIONS (2)
  - Product dose omission [Unknown]
  - Arthralgia [Unknown]
